FAERS Safety Report 18398564 (Version 3)
Quarter: 2020Q4

REPORT INFORMATION
  Report Type: Spontaneous
  Country: US (occurrence: US)
  Receive Date: 20201019
  Receipt Date: 20201104
  Transmission Date: 20210114
  Serious: Yes (Other)
  Sender: FDA-Public Use
  Company Number: US-CIPLA LTD.-2020US07228

PATIENT

DRUGS (16)
  1. METRONIDAZOLE. [Concomitant]
     Active Substance: METRONIDAZOLE
     Indication: GRANULOMA
     Dosage: UNK, 0.75 %
     Route: 065
     Dates: start: 202003
  2. PROBIOTICS NOS [Concomitant]
     Active Substance: PROBIOTICS NOS
     Indication: PRODUCT USED FOR UNKNOWN INDICATION
     Dosage: UNK, ONE A DAY
     Route: 065
  3. SOOLANTRA [Concomitant]
     Active Substance: IVERMECTIN
     Indication: GRANULOMA
     Dosage: 0.1 PERCENT, QD (ONCE A DAY IN THE MORNING)
     Route: 065
     Dates: start: 20200328
  4. METRONIDAZOLE. [Concomitant]
     Active Substance: METRONIDAZOLE
     Indication: INFLAMMATION
  5. AMZEEQ [Concomitant]
     Active Substance: MINOCYCLINE HYDROCHLORIDE
     Indication: GRANULOMA
     Dosage: 4 PERCENT, QD (ONCE AT NIGHT)
     Route: 065
     Dates: start: 20200916, end: 202009
  6. ZINC GLUCONATE [Concomitant]
     Active Substance: ZINC GLUCONATE
     Indication: ZINC DEFICIENCY
     Dosage: 12 MG, 4 TIMES A WEEK
     Route: 065
     Dates: start: 20200530
  7. VITAMIN B12 [Concomitant]
     Active Substance: CYANOCOBALAMIN
     Indication: PRODUCT USED FOR UNKNOWN INDICATION
     Dosage: UNK
     Route: 065
     Dates: start: 2016
  8. DOXYCYCLINE HYCLATE. [Concomitant]
     Active Substance: DOXYCYCLINE HYCLATE
     Indication: INFLAMMATION
     Dosage: 400 MG A DAY
     Route: 065
  9. VITAMIN D3 [Concomitant]
     Active Substance: CHOLECALCIFEROL
     Indication: PRODUCT USED FOR UNKNOWN INDICATION
     Dosage: UNK, 2000 (UNITS UNSPECIFIED)
     Route: 065
     Dates: start: 2013
  10. GABAPENTIN. [Suspect]
     Active Substance: GABAPENTIN
     Indication: TRIGEMINAL NEURALGIA
     Dosage: 300 MILLIGRAM, TID (THREE TIMES A DAY)
     Route: 048
     Dates: start: 20200512
  11. AMZEEQ [Concomitant]
     Active Substance: MINOCYCLINE HYDROCHLORIDE
     Indication: INFLAMMATION
  12. DOXYCYCLINE HYCLATE. [Concomitant]
     Active Substance: DOXYCYCLINE HYCLATE
     Indication: GRANULOMA
     Dosage: 20 MILLIGRAM, BID (TWICE A DAY)
     Route: 065
     Dates: start: 202002
  13. SOOLANTRA [Concomitant]
     Active Substance: IVERMECTIN
     Indication: INFLAMMATION
  14. VIT E [TOCOPHEROL] [Concomitant]
     Indication: PRODUCT USED FOR UNKNOWN INDICATION
     Dosage: UNK, 400 (UNITS UNSPECIFIED)
     Route: 065
     Dates: start: 20200920
  15. VITAMINS NOS [Concomitant]
     Active Substance: VITAMINS
     Indication: HYPOVITAMINOSIS
     Dosage: UNK, DAILY
     Route: 065
  16. VITAMIN C [Concomitant]
     Active Substance: ASCORBIC ACID
     Indication: PRODUCT USED FOR UNKNOWN INDICATION
     Dosage: 500 MG A DAY
     Route: 065
     Dates: start: 20200920

REACTIONS (5)
  - Haemorrhage [Not Recovered/Not Resolved]
  - Contusion [Not Recovered/Not Resolved]
  - Product use in unapproved indication [Not Recovered/Not Resolved]
  - Blood parathyroid hormone increased [Not Recovered/Not Resolved]
  - Off label use [Not Recovered/Not Resolved]

NARRATIVE: CASE EVENT DATE: 20200512
